FAERS Safety Report 9736689 (Version 1)
Quarter: 2013Q4

REPORT INFORMATION
  Report Type: Spontaneous
  Country: US (occurrence: US)
  Receive Date: 20131206
  Receipt Date: 20131206
  Transmission Date: 20140711
  Serious: No
  Sender: FDA-Public Use
  Company Number: US-GILEAD-2009-0023373

PATIENT
  Sex: Female
  Weight: 58.97 kg

DRUGS (6)
  1. LETAIRIS [Suspect]
     Indication: PULMONARY ARTERIAL HYPERTENSION
     Route: 048
     Dates: start: 20090709
  2. PROVENTIL [Concomitant]
  3. ADVAIR [Concomitant]
  4. SPIRIVA [Concomitant]
  5. ACTONEL [Concomitant]
  6. MULTIVITAMIN [Concomitant]

REACTIONS (3)
  - Dyspnoea [Unknown]
  - Palpitations [Unknown]
  - Swelling [Unknown]
